FAERS Safety Report 16947386 (Version 1)
Quarter: 2019Q4

REPORT INFORMATION
  Report Type: Spontaneous
  Country: US (occurrence: US)
  Receive Date: 20191022
  Receipt Date: 20191022
  Transmission Date: 20200122
  Serious: Yes (Hospitalization, Other)
  Sender: FDA-Public Use
  Company Number: US-SHIRE-US201928741

PATIENT
  Age: 47 Year
  Sex: Female

DRUGS (1)
  1. GATTEX [Suspect]
     Active Substance: TEDUGLUTIDE\WATER
     Indication: PRODUCT USED FOR UNKNOWN INDICATION
     Dosage: 0.2820 UNK
     Route: 058
     Dates: start: 20190126

REACTIONS (3)
  - Fistula [Recovered/Resolved]
  - Sepsis [Unknown]
  - Hospitalisation [Recovering/Resolving]
